FAERS Safety Report 5671095-2 (Version None)
Quarter: 2008Q1

REPORT INFORMATION
  Report Type: 
  Country: None (occurrence: None)
  Receive Date: 20080318
  Receipt Date: 20080311
  Transmission Date: 20080703
  Serious: Yes (Hospitalization)
  Sender: FDA-Public Use
  Company Number: US-ELI_LILLY_AND_COMPANY-US200803002447

PATIENT
  Sex: Female

DRUGS (6)
  1. BYETTA [Suspect]
     Dosage: 5 UG, 2/D
     Route: 058
     Dates: start: 20070301, end: 20070501
  2. BYETTA [Suspect]
     Dosage: 10 UG, 2/D
     Route: 058
     Dates: start: 20070501, end: 20071101
  3. BYETTA [Suspect]
     Dosage: 5 UG, 2/D
     Route: 058
     Dates: start: 20080201
  4. AVANDIA [Concomitant]
     Dosage: 1000 MG, 2/D
     Route: 048
  5. PREVACID [Concomitant]
  6. CELEBREX [Concomitant]

REACTIONS (5)
  - BLOOD GLUCOSE DECREASED [None]
  - DRUG INTOLERANCE [None]
  - EATING DISORDER [None]
  - KNEE ARTHROPLASTY [None]
  - WEIGHT DECREASED [None]
